FAERS Safety Report 9282697 (Version 2)
Quarter: 2013Q3

REPORT INFORMATION
  Report Type: Spontaneous
  Country: US (occurrence: US)
  Receive Date: 20130510
  Receipt Date: 20130717
  Transmission Date: 20140515
  Serious: Yes (Other)
  Sender: FDA-Public Use
  Company Number: US-PERRIGO-13US004685

PATIENT
  Age: 22 Year
  Sex: Female
  Weight: 62.59 kg

DRUGS (1)
  1. MUSCLE ULTR CRM 049 [Suspect]
     Indication: PAIN IN EXTREMITY
     Dosage: SMALL AMOUNT, SINGLE
     Route: 061
     Dates: start: 20130420, end: 20130420

REACTIONS (5)
  - Blister infected [Recovering/Resolving]
  - Application site vesicles [Recovering/Resolving]
  - Application site erythema [Recovering/Resolving]
  - Application site warmth [Not Recovered/Not Resolved]
  - Application site pain [Unknown]
